FAERS Safety Report 17468342 (Version 1)
Quarter: 2020Q1

REPORT INFORMATION
  Report Type: Spontaneous
  Country: US (occurrence: US)
  Receive Date: 20200227
  Receipt Date: 20200227
  Transmission Date: 20200409
  Serious: Yes (Life-Threatening, Hospitalization, Other)
  Sender: FDA-Public Use
  Company Number: None

PATIENT
  Age: 41 Year
  Sex: Female
  Weight: 83 kg

DRUGS (3)
  1. CRIZANLIZUMAB [Suspect]
     Active Substance: CRIZANLIZUMAB
     Indication: SICKLE CELL DISEASE
     Dosage: ?          OTHER FREQUENCY:FIRST DOSE;?
     Route: 041
     Dates: start: 20200221, end: 20200221
  2. FOLIC ACID. [Concomitant]
     Active Substance: FOLIC ACID
  3. ERGOCALCIFEROL. [Concomitant]
     Active Substance: ERGOCALCIFEROL

REACTIONS (5)
  - Mental status changes [None]
  - Hypertension [None]
  - Infusion related reaction [None]
  - Pain [None]
  - Thrombocytopenia [None]

NARRATIVE: CASE EVENT DATE: 20200223
